FAERS Safety Report 9180593 (Version 3)
Quarter: 2014Q1

REPORT INFORMATION
  Report Type: Spontaneous
  Country: US (occurrence: None)
  Receive Date: 20130320
  Receipt Date: 20131115
  Transmission Date: 20141002
  Serious: Yes (Other)
  Sender: FDA-Public Use
  Company Number: 2013P1003160

PATIENT
  Age: 54 Year
  Sex: Female

DRUGS (9)
  1. INFUMORPH [Suspect]
     Indication: PAIN
  2. INFUMORPH [Suspect]
     Indication: POST LAMINECTOMY SYNDROME
  3. FENTANYL [Suspect]
     Indication: PAIN
  4. FENTANYL [Suspect]
     Indication: POST LAMINECTOMY SYNDROME
  5. MSIR [Concomitant]
  6. ATARAX [Concomitant]
  7. AMBIEN [Concomitant]
  8. AMITIZA [Concomitant]
  9. LACTULOSE [Concomitant]

REACTIONS (7)
  - Pyrexia [None]
  - Chills [None]
  - Nausea [None]
  - Influenza like illness [None]
  - Device damage [None]
  - Drug withdrawal syndrome [None]
  - Device malfunction [None]
